FAERS Safety Report 5300442-6 (Version None)
Quarter: 2007Q2

REPORT INFORMATION
  Report Type: 
  Country: None (occurrence: None)
  Receive Date: 20070413
  Receipt Date: 20070413
  Transmission Date: 20071010
  Serious: Yes (Life-Threatening, Hospitalization, Disabling, Other)
  Sender: FDA-Public Use
  Company Number: None

PATIENT
  Sex: Female
  Weight: 54.4316 kg

DRUGS (1)
  1. TAMOXIFEN CITRATE [Suspect]
     Indication: BREAST CANCER
     Dosage: 20MG QD PO
     Route: 048
     Dates: start: 20021225, end: 20060311

REACTIONS (6)
  - AMPUTATION [None]
  - DRUG INEFFECTIVE [None]
  - FOOT AMPUTATION [None]
  - GANGRENE [None]
  - SEPSIS [None]
  - THROMBOSIS [None]
